FAERS Safety Report 19220107 (Version 1)
Quarter: 2021Q2

REPORT INFORMATION
  Report Type: Spontaneous
  Country: GB (occurrence: GB)
  Receive Date: 20210506
  Receipt Date: 20210506
  Transmission Date: 20210717
  Serious: Yes (Other)
  Sender: FDA-Public Use
  Company Number: GB-SUN PHARMACEUTICAL INDUSTRIES LTD-2021RR-294867

PATIENT
  Age: 78 Year
  Sex: Male
  Weight: 76.2 kg

DRUGS (6)
  1. HUMAN INSULATARD [Suspect]
     Active Substance: INSULIN HUMAN
     Indication: DIABETES MELLITUS
     Dosage: 1 DOSAGE FORM, 1 DOSE, DAILY
     Route: 051
  2. METFORMIN [Suspect]
     Active Substance: METFORMIN HYDROCHLORIDE
     Indication: DIABETES MELLITUS
     Dosage: 500 MILLIGRAM, 2 DOSE, DAILY
     Route: 048
  3. SASTRAVI [Suspect]
     Active Substance: CARBIDOPA\ENTACAPONE\LEVODOPA
     Indication: PARKINSON^S DISEASE
     Dosage: 150 MILLIGRAM, DAILY
     Route: 048
     Dates: start: 2015
  4. ATORVASTATIN [Suspect]
     Active Substance: ATORVASTATIN
     Indication: DIABETES MELLITUS
     Dosage: 20 MILLIGRAM, 1 DOSE, DAILY
     Route: 048
  5. SITAGLIPTIN [Suspect]
     Active Substance: SITAGLIPTIN
     Indication: DIABETES MELLITUS
     Dosage: 50 MILLIGRAM, 1 DOSE, DAILY
     Route: 048
  6. NEDITOL [Suspect]
     Active Substance: TOLTERODINE
     Indication: HYPERTONIC BLADDER
     Dosage: 4 MILLIGRAM, 1 DOSE, DAILY
     Route: 048

REACTIONS (3)
  - Gait inability [Recovered/Resolved]
  - Somnolence [Recovered/Resolved]
  - Confusional state [Recovered/Resolved]

NARRATIVE: CASE EVENT DATE: 20210117
